FAERS Safety Report 5922541-8 (Version None)
Quarter: 2008Q4

REPORT INFORMATION
  Report Type: 
  Country: None (occurrence: None)
  Receive Date: 20081017
  Receipt Date: 20081008
  Transmission Date: 20090506
  Serious: Yes (Hospitalization)
  Sender: FDA-Public Use
  Company Number: PHHY2008SK23972

PATIENT
  Sex: Male

DRUGS (1)
  1. ZOMETA [Suspect]
     Indication: METASTATIC NEOPLASM
     Dosage: ONE INTRAVENOUS INJECTION EVERY 4 WEEKS
     Route: 042
     Dates: start: 20070601, end: 20080101

REACTIONS (3)
  - ORAL DISORDER [None]
  - OSTEONECROSIS [None]
  - SURGERY [None]
